FAERS Safety Report 19440877 (Version 1)
Quarter: 2021Q2

REPORT INFORMATION
  Report Type: Other
  Country: CA (occurrence: CA)
  Receive Date: 20210621
  Receipt Date: 20210621
  Transmission Date: 20210717
  Serious: Yes (Hospitalization, Other)
  Sender: FDA-Public Use
  Company Number: CA-ROCHE-2156392

PATIENT
  Age: 58 Year
  Sex: Male

DRUGS (41)
  1. RITUXAN [Suspect]
     Active Substance: RITUXIMAB
     Route: 042
     Dates: start: 20190417
  2. DIPHENHYDRAMINE HCL [Concomitant]
     Active Substance: DIPHENHYDRAMINE HYDROCHLORIDE
     Indication: PREMEDICATION
     Route: 048
  3. ACETAMINOPHEN. [Concomitant]
     Active Substance: ACETAMINOPHEN
     Indication: PREMEDICATION
     Dosage: FOUR 325MG CAPSULE TWICE DAILY AS REQUIRED.
     Route: 048
  4. TYLENOL [Concomitant]
     Active Substance: ACETAMINOPHEN
     Indication: HEADACHE
     Route: 048
     Dates: start: 20181017
  5. ELIQUIS [Concomitant]
     Active Substance: APIXABAN
     Route: 048
  6. GLYCOPYRRONIUM [Concomitant]
     Active Substance: GLYCOPYRRONIUM
     Dosage: ONE INHALATION
     Route: 055
  7. PRAVASTATINE [Concomitant]
     Active Substance: PRAVASTATIN
     Indication: BLOOD CHOLESTEROL ABNORMAL
     Route: 048
  8. LANTUS [Concomitant]
     Active Substance: INSULIN GLARGINE
     Indication: DIABETES MELLITUS
     Route: 058
  9. RITUXAN [Suspect]
     Active Substance: RITUXIMAB
     Route: 042
     Dates: start: 20181017
  10. BENADRYL [Concomitant]
     Active Substance: DIPHENHYDRAMINE HYDROCHLORIDE
     Indication: PREMEDICATION
     Route: 048
     Dates: start: 20181017
  11. LASIX [Concomitant]
     Active Substance: FUROSEMIDE
  12. TRAMADOL. [Concomitant]
     Active Substance: TRAMADOL
     Dosage: ONGOING, ONE TO TWO TABLETS EVERY 6 HOURS AS REQUIRED
     Route: 048
  13. FORMOTEROL [Concomitant]
     Active Substance: FORMOTEROL
  14. INSULIN ASPART [Concomitant]
     Active Substance: INSULIN ASPART
     Indication: DIABETES MELLITUS
     Dosage: ACCORDING TO BLOOD SUGAR LEVELS
     Route: 058
  15. METFORMIN [Concomitant]
     Active Substance: METFORMIN HYDROCHLORIDE
     Route: 048
  16. PYRIDOSTIGMINE [Concomitant]
     Active Substance: PYRIDOSTIGMINE
     Route: 048
  17. SALBUTAMOL [Concomitant]
     Active Substance: ALBUTEROL
     Dosage: TWO INHALATIONS FOUR TIMES DAILY AS REQUIRED (6 HOURS?APART)
     Route: 055
  18. SOLU?MEDROL [Concomitant]
     Active Substance: METHYLPREDNISOLONE SODIUM SUCCINATE
     Dosage: UNCONFIRMED PREVIOUS EXPOSURE AS FIRST PIR RECEIVED 17/OCT/2018.
     Route: 042
     Dates: start: 20181017
  19. SPIRIVA [Concomitant]
     Active Substance: TIOTROPIUM BROMIDE MONOHYDRATE
     Dosage: ONE INHALATION DAILY
     Route: 055
  20. PERINDOPRIL ERBUMINE. [Concomitant]
     Active Substance: PERINDOPRIL ERBUMINE
     Indication: BLOOD PRESSURE MEASUREMENT
     Route: 048
  21. XARELTO [Concomitant]
     Active Substance: RIVAROXABAN
     Route: 048
  22. BUDESONIDE;FORMOTEROL [Concomitant]
     Active Substance: BUDESONIDE\FORMOTEROL
     Dosage: TWO INHALATION TWICE DAILY
     Route: 055
  23. CALCIUM D [Concomitant]
     Active Substance: CALCIUM\VITAMIN D
     Route: 048
  24. PREDNISONE. [Concomitant]
     Active Substance: PREDNISONE
     Route: 048
  25. RITUXAN [Suspect]
     Active Substance: RITUXIMAB
     Indication: MYASTHENIA GRAVIS
     Dosage: RECEIVED OUTSIDE RPAP
     Route: 042
     Dates: start: 20180405, end: 20180419
  26. METHYLPREDNISOLONE. [Concomitant]
     Active Substance: METHYLPREDNISOLONE
     Indication: PREMEDICATION
     Route: 042
  27. LASIX [Concomitant]
     Active Substance: FUROSEMIDE
  28. DILTIAZEM. [Concomitant]
     Active Substance: DILTIAZEM
     Indication: BLOOD PRESSURE MEASUREMENT
     Route: 048
  29. IRON SULFATE [Concomitant]
     Active Substance: FERROUS SULFATE ANHYDROUS
     Route: 048
  30. FUROSEMIDE. [Concomitant]
     Active Substance: FUROSEMIDE
     Route: 048
  31. LIRAGLUTIDE [Concomitant]
     Active Substance: LIRAGLUTIDE
     Route: 058
  32. PYRIDOSTIGMINE [Concomitant]
     Active Substance: PYRIDOSTIGMINE
     Dosage: ONE AND A HALF OF 60MG IN THE MORNING, IF REQUIRED TAKE?SAME DURING THE AFTERNOON AGAIN.
     Route: 048
  33. DOMPERIDONE [Concomitant]
     Active Substance: DOMPERIDONE
     Dosage: AS REQUIRED
     Route: 048
  34. PANTOPRAZOLE [Concomitant]
     Active Substance: PANTOPRAZOLE
     Route: 048
  35. VITAMIN D3 [Concomitant]
     Active Substance: CHOLECALCIFEROL
     Dosage: SUNDAY/TUESDAY/FRIDAY
     Route: 048
  36. APO?DILTIAZ [Concomitant]
     Active Substance: DILTIAZEM HYDROCHLORIDE
     Dates: start: 20190318
  37. IRON SULFATE [Concomitant]
     Active Substance: FERROUS SULFATE ANHYDROUS
     Route: 048
  38. ONDANSETRON [Concomitant]
     Active Substance: ONDANSETRON
     Indication: NAUSEA
     Dosage: HALF OF 8MG TABLET THREE TIMES DAILY AS REQUIRED
     Route: 048
  39. TYLENOL [Concomitant]
     Active Substance: ACETAMINOPHEN
     Indication: PREMEDICATION
  40. CELLCEPT [Concomitant]
     Active Substance: MYCOPHENOLATE MOFETIL\MYCOPHENOLATE MOFETIL HYDROCHLORIDE
  41. PREDNISONE. [Concomitant]
     Active Substance: PREDNISONE
     Route: 048

REACTIONS (14)
  - Mass [Not Recovered/Not Resolved]
  - Renal impairment [Unknown]
  - Dyspnoea [Unknown]
  - Vomiting [Unknown]
  - Limb injury [Unknown]
  - Dry skin [Unknown]
  - Respiratory disorder [Unknown]
  - Blood pressure systolic increased [Unknown]
  - Headache [Unknown]
  - Off label use [Unknown]
  - Pneumonia [Unknown]
  - Hypertension [Unknown]
  - Protein urine present [Unknown]
  - Diabetic vascular disorder [Unknown]

NARRATIVE: CASE EVENT DATE: 20180628
